FAERS Safety Report 8987697 (Version 1)
Quarter: 2012Q4

REPORT INFORMATION
  Report Type: 
  Country: IT (occurrence: IT)
  Receive Date: 20121227
  Receipt Date: 20121227
  Transmission Date: 20130627
  Serious: Yes (Hospitalization)
  Sender: FDA-Public Use
  Company Number: PHHY2012IT120001

PATIENT
  Sex: Female

DRUGS (2)
  1. FLUOXETINE [Suspect]
     Indication: ANXIETY
     Dosage: 28 DF, total dose
     Route: 048
     Dates: start: 20121216, end: 20121216
  2. ACETYLSALICYLIC ACID [Suspect]
     Dosage: 8 DF, UNK
     Route: 048
     Dates: start: 20121216, end: 20121216

REACTIONS (1)
  - Drug abuse [Unknown]
